FAERS Safety Report 18385013 (Version 2)
Quarter: 2020Q4

REPORT INFORMATION
  Report Type: Report from Study
  Country: None (occurrence: IT)
  Receive Date: 20201014
  Receipt Date: 20201022
  Transmission Date: 20210114
  Serious: Yes (Death, Hospitalization)
  Sender: FDA-Public Use
  Company Number: IT-ABBVIE-20K-083-3604726-00

PATIENT
  Age: 63 Year
  Sex: Male

DRUGS (2)
  1. DUODOPA [Suspect]
     Active Substance: CARBIDOPA\LEVODOPA
  2. DUODOPA [Suspect]
     Active Substance: CARBIDOPA\LEVODOPA
     Indication: PARKINSON^S DISEASE
     Dosage: TOTAL DAILY DOSE (MG): 1250; PUMP SETTING: MD: 10,5+3; CR: 3 (15H); ED: 3,5
     Route: 050
     Dates: start: 20180305, end: 20201013

REACTIONS (2)
  - General physical health deterioration [Fatal]
  - Diabetic coma [Fatal]

NARRATIVE: CASE EVENT DATE: 20201010
